FAERS Safety Report 10008781 (Version 1)
Quarter: 2014Q1

REPORT INFORMATION
  Report Type: Spontaneous
  Country: US (occurrence: US)
  Receive Date: 20140312
  Receipt Date: 20140312
  Transmission Date: 20141002
  Serious: No
  Sender: FDA-Public Use
  Company Number: US-INCYTE CORPORATION-2012IN000527

PATIENT
  Age: 58 Year
  Sex: Male

DRUGS (5)
  1. JAKAFI [Suspect]
     Indication: MYELOFIBROSIS
     Dosage: 20 MG, BID
     Route: 048
     Dates: start: 20120331
  2. METOPROLOL [Concomitant]
     Dosage: 50 MG, BID
  3. TRICOR [Concomitant]
     Dosage: 45 MG, QD
  4. LIPITOR [Concomitant]
     Dosage: 80 MG, QD
  5. CELEXA [Concomitant]
     Dosage: 40 MG, QD

REACTIONS (3)
  - Joint swelling [Not Recovered/Not Resolved]
  - Arthralgia [Not Recovered/Not Resolved]
  - Contusion [Not Recovered/Not Resolved]
